FAERS Safety Report 7687277-4 (Version None)
Quarter: 2011Q3

REPORT INFORMATION
  Report Type: 
  Country: None (occurrence: None)
  Receive Date: 20110816
  Receipt Date: 20110804
  Transmission Date: 20111222
  Serious: Yes (Other)
  Sender: FDA-Public Use
  Company Number: NL-SANOFI-AVENTIS-2011SA048210

PATIENT
  Age: 70 Year
  Sex: Male
  Weight: 95 kg

DRUGS (9)
  1. NORTRIPTYLINE HCL [Concomitant]
     Route: 065
  2. AMLODIPINE [Concomitant]
     Route: 065
  3. ACENOCOUMAROL [Concomitant]
     Route: 065
  4. OMEPRAZOLE [Concomitant]
     Route: 065
  5. GLIMEPIRIDE [Concomitant]
     Route: 065
  6. DEPAKENE [Concomitant]
     Route: 065
  7. DRONEDARONE HCL [Suspect]
     Indication: ATRIAL FIBRILLATION
     Route: 048
     Dates: start: 20110216, end: 20110316
  8. ALFUZOSIN HCL [Concomitant]
     Route: 065
  9. LOSARTAN POTASSIUM [Concomitant]
     Route: 065

REACTIONS (1)
  - TRANSIENT ISCHAEMIC ATTACK [None]
